FAERS Safety Report 23940952 (Version 1)
Quarter: 2024Q2

REPORT INFORMATION
  Report Type: Spontaneous
  Country: TW (occurrence: None)
  Receive Date: 20240605
  Receipt Date: 20240605
  Transmission Date: 20240716
  Serious: Yes (Hospitalization, Other)
  Sender: FDA-Public Use
  Company Number: TW-ALVOTECHPMS-2024-ALVOTECHPMS-001910

PATIENT
  Age: 31 Year
  Sex: Female

DRUGS (3)
  1. ADALIMUMAB [Suspect]
     Active Substance: ADALIMUMAB\ISOPROPYL ALCOHOL
     Indication: Impetigo herpetiformis
     Dosage: 80 MG
  2. ADALIMUMAB [Suspect]
     Active Substance: ADALIMUMAB\ISOPROPYL ALCOHOL
     Indication: Impetigo herpetiformis
     Dosage: 40 MG
  3. ADALIMUMAB [Suspect]
     Active Substance: ADALIMUMAB\ISOPROPYL ALCOHOL
     Indication: Impetigo herpetiformis
     Dosage: 40 MG

REACTIONS (2)
  - Exposure during pregnancy [Unknown]
  - Preterm premature rupture of membranes [Unknown]
